FAERS Safety Report 6916427-X (Version None)
Quarter: 2010Q3

REPORT INFORMATION
  Report Type: 
  Country: None (occurrence: None)
  Receive Date: 20100810
  Receipt Date: 20100727
  Transmission Date: 20110219
  Serious: Yes (Hospitalization)
  Sender: FDA-Public Use
  Company Number: PHHY2010CA49709

PATIENT
  Sex: Female

DRUGS (1)
  1. CLOZARIL [Suspect]
     Indication: SCHIZOPHRENIA
     Dosage: UNK
     Dates: start: 19981106

REACTIONS (9)
  - ABSCESS DRAINAGE [None]
  - APPENDICEAL ABSCESS [None]
  - APPENDICECTOMY [None]
  - DEBRIDEMENT [None]
  - ENTERAL NUTRITION [None]
  - GASTROINTESTINAL FISTULA [None]
  - GASTROINTESTINAL INFECTION [None]
  - GASTROINTESTINAL OBSTRUCTION [None]
  - INTESTINAL ADHESION LYSIS [None]
